FAERS Safety Report 9859746 (Version 1)
Quarter: 2014Q1

REPORT INFORMATION
  Report Type: Report from Study
  Country: US (occurrence: US)
  Receive Date: 20140131
  Receipt Date: 20140131
  Transmission Date: 20141002
  Serious: Yes (Hospitalization)
  Sender: FDA-Public Use
  Company Number: US-ABBVIE-14P-163-1193794-00

PATIENT
  Age: 50 Year
  Sex: Female

DRUGS (3)
  1. HUMIRA [Suspect]
     Indication: COLITIS ULCERATIVE
     Dates: start: 20131220, end: 201401
  2. HUMIRA [Suspect]
     Route: 058
     Dates: start: 201401
  3. LEXAPRO [Concomitant]
     Indication: ANXIETY
     Dosage: BY MOUTH
     Route: 048

REACTIONS (2)
  - Defaecation urgency [Recovering/Resolving]
  - Colitis ulcerative [Recovering/Resolving]
